FAERS Safety Report 16973515 (Version 1)
Quarter: 2019Q4

REPORT INFORMATION
  Report Type: Spontaneous
  Country: BR (occurrence: BR)
  Receive Date: 20191030
  Receipt Date: 20191030
  Transmission Date: 20200122
  Serious: Yes (Other)
  Sender: FDA-Public Use
  Company Number: BR-GLAXOSMITHKLINE-BR2019AMR193377

PATIENT
  Age: 49 Year
  Sex: Female

DRUGS (1)
  1. ZINNAT [Suspect]
     Active Substance: CEFUROXIME
     Indication: URINARY TRACT INFECTION
     Dosage: 1 DF, BID (TABLET)
     Dates: start: 20191007

REACTIONS (9)
  - Diarrhoea [Recovering/Resolving]
  - Abdominal pain [Recovering/Resolving]
  - Colitis [Recovering/Resolving]
  - Candida infection [Recovering/Resolving]
  - Dysphonia [Recovering/Resolving]
  - Sensory disturbance [Not Recovered/Not Resolved]
  - Gait disturbance [Recovering/Resolving]
  - Inflammatory bowel disease [Recovering/Resolving]
  - Abdominal discomfort [Recovering/Resolving]
